FAERS Safety Report 16242434 (Version 1)
Quarter: 2019Q2

REPORT INFORMATION
  Report Type: Spontaneous
  Country: US (occurrence: US)
  Receive Date: 20190426
  Receipt Date: 20190426
  Transmission Date: 20190711
  Serious: Yes (Other)
  Sender: FDA-Public Use
  Company Number: US-CPL-000992

PATIENT
  Age: 48 Year
  Sex: Male

DRUGS (5)
  1. CITALOPRAM [Concomitant]
     Active Substance: CITALOPRAM HYDROBROMIDE
     Indication: DEPRESSION
  2. CARVEDILOL/CARVEDILOL HYDROCHLODRIDE [Concomitant]
     Indication: CARDIAC FAILURE
  3. SPIRONOLACTONE. [Concomitant]
     Active Substance: SPIRONOLACTONE
     Indication: HYPERTENSION
  4. HYDRALAZINE/HYDRALAZINE HYDROCHLORIDE [Suspect]
     Active Substance: HYDRALAZINE HYDROCHLORIDE
     Indication: HYPERTENSION
  5. AMLODIPINE [Concomitant]
     Active Substance: AMLODIPINE BESYLATE
     Indication: HYPERTENSION

REACTIONS (7)
  - Azotaemia [Unknown]
  - Haematuria [Unknown]
  - Anaemia [Unknown]
  - Lupus-like syndrome [Unknown]
  - Lymphopenia [Unknown]
  - Renal failure [Not Recovered/Not Resolved]
  - Proteinuria [Unknown]
